FAERS Safety Report 19088662 (Version 1)
Quarter: 2021Q2

REPORT INFORMATION
  Report Type: Report from Study
  Country: None (occurrence: CA)
  Receive Date: 20210402
  Receipt Date: 20210402
  Transmission Date: 20210717
  Serious: Yes (Other)
  Sender: FDA-Public Use
  Company Number: CA-ABBVIE-21K-028-3838567-00

PATIENT
  Sex: Female

DRUGS (3)
  1. METHOTREXATE. [Concomitant]
     Active Substance: METHOTREXATE
     Indication: PRODUCT USED FOR UNKNOWN INDICATION
     Route: 030
  2. HUMIRA [Suspect]
     Active Substance: ADALIMUMAB
     Indication: ANKYLOSING SPONDYLITIS
     Route: 058
     Dates: start: 20111027
  3. METHOTREXATE. [Concomitant]
     Active Substance: METHOTREXATE
     Route: 030
     Dates: start: 202103

REACTIONS (8)
  - Osteoarthritis [Unknown]
  - Weight decreased [Unknown]
  - Cartilage atrophy [Unknown]
  - Panic attack [Unknown]
  - Insomnia [Unknown]
  - Anxiety [Unknown]
  - Fatigue [Not Recovered/Not Resolved]
  - Spinal pain [Not Recovered/Not Resolved]

NARRATIVE: CASE EVENT DATE: 2016
